FAERS Safety Report 8512149 (Version 2)
Quarter: 2013Q3

REPORT INFORMATION
  Report Type: Spontaneous
  Country: US (occurrence: US)
  Receive Date: 20120413
  Receipt Date: 20130830
  Transmission Date: 20140515
  Serious: No
  Sender: FDA-Public Use
  Company Number: US-ASTRAZENECA-2011SE16439

PATIENT
  Age: 48 Year
  Sex: Female
  Weight: 108 kg

DRUGS (11)
  1. NEXIUM [Suspect]
     Indication: GASTROOESOPHAGEAL REFLUX DISEASE
     Route: 048
  2. PULMICORT FLEXHALER [Suspect]
     Route: 055
  3. RHINOCORT AQUA [Suspect]
     Route: 045
  4. SYMBICORT [Suspect]
     Indication: ASTHMA
     Dosage: 160/4.5MCG, 1 PUFF, TWO TIMES ADAY
     Route: 055
  5. DAPSONE [Concomitant]
  6. ALBUTEROL [Concomitant]
     Route: 055
  7. MOBIC [Concomitant]
  8. VICODIN [Concomitant]
     Indication: OSTEOARTHRITIS
  9. VICODIN [Concomitant]
     Indication: OSTEOARTHRITIS
  10. VICODIN [Concomitant]
     Indication: NERVE COMPRESSION
  11. IPRATROPIUM BROMIDE [Concomitant]
     Route: 055

REACTIONS (11)
  - Asthma [Unknown]
  - Gastrooesophageal reflux disease [Unknown]
  - Arthritis [Unknown]
  - Condition aggravated [Unknown]
  - Adverse event [Unknown]
  - Dyspnoea [Not Recovered/Not Resolved]
  - Dermatitis herpetiformis [Not Recovered/Not Resolved]
  - Coeliac disease [Unknown]
  - Off label use [Unknown]
  - Intentional drug misuse [Unknown]
  - Intentional drug misuse [Unknown]
